FAERS Safety Report 9851794 (Version 1)
Quarter: 2014Q1

REPORT INFORMATION
  Report Type: Spontaneous
  Country: US (occurrence: None)
  Receive Date: 20140127
  Receipt Date: 20140127
  Transmission Date: 20141002
  Serious: Yes (Death)
  Sender: FDA-Public Use
  Company Number: 2014AP000507

PATIENT
  Age: 59 Year
  Sex: Female

DRUGS (5)
  1. QUETIAPINE FUMARATE [Suspect]
     Route: 048
  2. OXYBUTYNIN CHLORIDE [Suspect]
     Route: 048
  3. ZOLPIDEM TARTRATE TABLETS [Suspect]
     Route: 048
  4. DULOXETINE [Suspect]
     Route: 048
  5. DIAZEPAM [Suspect]
     Route: 048

REACTIONS (2)
  - Completed suicide [None]
  - Cardio-respiratory arrest [None]
